FAERS Safety Report 8461469-9 (Version None)
Quarter: 2012Q2

REPORT INFORMATION
  Report Type: 
  Country: None (occurrence: None)
  Receive Date: 20120625
  Receipt Date: 20120611
  Transmission Date: 20120825
  Serious: Yes (Death, Other)
  Sender: FDA-Public Use
  Company Number: FR-RANBAXY-2012R1-57179

PATIENT
  Sex: Male
  Weight: 48 kg

DRUGS (8)
  1. NEVIRAPINE [Suspect]
     Indication: HIV INFECTION
  2. LAMIVUDINE [Suspect]
     Indication: HIV INFECTION
     Route: 065
  3. NELFINAVIR [Suspect]
     Indication: HIV INFECTION
     Route: 065
  4. DIDANOSINE [Suspect]
     Dosage: 250MG DAILY
  5. DIDANOSINE [Suspect]
     Indication: HIV INFECTION
     Dosage: 400 MG, QID
     Route: 065
  6. LOPINAVIR [Suspect]
     Indication: HIV INFECTION
  7. ZIDOVUDINE [Suspect]
     Indication: HIV INFECTION
     Dosage: 300 MG, BID
     Route: 065
  8. EFAVIRENZ [Suspect]
     Indication: HIV INFECTION
     Route: 065

REACTIONS (5)
  - OSTEOPOROSIS [None]
  - PORTAL HYPERTENSION [None]
  - PROTEIN-LOSING GASTROENTEROPATHY [None]
  - NODULAR REGENERATIVE HYPERPLASIA [None]
  - LIPODYSTROPHY ACQUIRED [None]
